FAERS Safety Report 9471550 (Version 1)
Quarter: 2013Q3

REPORT INFORMATION
  Report Type: Spontaneous
  Country: CH (occurrence: CH)
  Receive Date: 20130822
  Receipt Date: 20130822
  Transmission Date: 20140515
  Serious: Yes (Hospitalization)
  Sender: FDA-Public Use
  Company Number: PHHY2013CH089020

PATIENT
  Age: 29 Year
  Sex: Female

DRUGS (18)
  1. CLOPIN ECO [Suspect]
     Indication: SCHIZOPHRENIA, PARANOID TYPE
     Dosage: 50 MG, UNK
     Route: 048
     Dates: start: 20130701
  2. CLOPIN ECO [Interacting]
     Dosage: 100 MG, UNK
     Route: 048
     Dates: start: 20130703, end: 20130704
  3. CLOPIN ECO [Interacting]
     Dosage: 150 MG, UNK
     Route: 048
     Dates: start: 20130705, end: 20130707
  4. CLOPIN ECO [Interacting]
     Dosage: 200 MG, UNK
     Route: 048
     Dates: start: 20130708, end: 20130709
  5. CLOPIN ECO [Interacting]
     Dosage: 250 MG, UNK
     Route: 048
     Dates: start: 20130710, end: 20130711
  6. CLOPIN ECO [Interacting]
     Dosage: 300 MG, UNK
     Route: 048
     Dates: start: 20130712, end: 20130714
  7. CLOPIN ECO [Interacting]
     Dosage: 350 MG, UNK
     Route: 048
     Dates: start: 20130715
  8. CLOPIN ECO [Interacting]
     Dosage: 150 MG, UNK
     Route: 048
     Dates: start: 20130716
  9. CLOPIN ECO [Interacting]
     Dosage: 100 MG, UNK
     Route: 048
     Dates: start: 20130717, end: 20130719
  10. CLOPIN ECO [Interacting]
     Dosage: 150 MG, UNK
     Route: 048
     Dates: start: 20130720, end: 20130721
  11. CLOPIN ECO [Interacting]
     Dosage: 200 MG, UNK
     Route: 048
     Dates: start: 20130722, end: 20130728
  12. CLOPIN ECO [Interacting]
     Dosage: 250 MG, UNK
     Route: 048
     Dates: start: 20130729, end: 20130802
  13. CLOPIN ECO [Interacting]
     Dosage: 300 MG, UNK
     Route: 048
     Dates: start: 20130803
  14. SERTRALINE [Interacting]
     Dosage: 100 MG, UNK
     Route: 048
     Dates: start: 20130702
  15. SOLIAN [Suspect]
     Indication: SCHIZOPHRENIA, PARANOID TYPE
     Dosage: 400 MG, UNK
     Route: 048
     Dates: start: 20130701
  16. SOLIAN [Suspect]
     Dosage: 800 MG/DAY
     Route: 048
     Dates: start: 20130703
  17. SOLIAN [Suspect]
     Dosage: 1200 MG,/DAY
     Route: 048
     Dates: start: 20130705
  18. OMEZOL//OMEPRAZOLE [Suspect]
     Dosage: 20 MG, UNK
     Route: 048
     Dates: start: 20130702

REACTIONS (2)
  - Neutropenia [Recovered/Resolved]
  - Drug interaction [Recovered/Resolved]
